FAERS Safety Report 8395049-0 (Version None)
Quarter: 2012Q2

REPORT INFORMATION
  Report Type: 
  Country: None (occurrence: None)
  Receive Date: 20120530
  Receipt Date: 20120523
  Transmission Date: 20120825
  Serious: Yes (Other)
  Sender: FDA-Public Use
  Company Number: US-CELGENEUS-163-21880-11122106

PATIENT
  Sex: Male

DRUGS (3)
  1. NEUPOGEN [Concomitant]
     Route: 065
  2. REVLIMID [Suspect]
     Indication: MULTIPLE MYELOMA
     Dosage: 15 MILLIGRAM
     Route: 048
     Dates: start: 20090612
  3. ASPIRIN [Concomitant]
     Route: 065

REACTIONS (7)
  - FATIGUE [None]
  - INCREASED TENDENCY TO BRUISE [None]
  - HAEMORRHAGIC DIATHESIS [None]
  - THROMBOSIS [None]
  - FULL BLOOD COUNT DECREASED [None]
  - NEUTROPENIA [None]
  - NASOPHARYNGITIS [None]
